FAERS Safety Report 6337696-3 (Version None)
Quarter: 2009Q3

REPORT INFORMATION
  Report Type: 
  Country: None (occurrence: None)
  Receive Date: 20090902
  Receipt Date: 20090403
  Transmission Date: 20100115
  Serious: No
  Sender: FDA-Public Use
  Company Number: US-BAYER-200823791NA

PATIENT
  Age: 69 Year
  Sex: Female
  Weight: 67 kg

DRUGS (2)
  1. MAGNEVIST [Suspect]
     Indication: NUCLEAR MAGNETIC RESONANCE IMAGING
     Dosage: ANTECUBITAL/ HAND INJECTION
     Route: 042
     Dates: start: 20080512, end: 20080512
  2. VALIUM [Concomitant]
     Indication: CLAUSTROPHOBIA
     Route: 048
     Dates: start: 20080512, end: 20080512

REACTIONS (1)
  - URTICARIA [None]
